FAERS Safety Report 15599198 (Version 3)
Quarter: 2019Q3

REPORT INFORMATION
  Report Type: Report from Study
  Country: US (occurrence: US)
  Receive Date: 20181108
  Receipt Date: 20190724
  Transmission Date: 20191004
  Serious: Yes (Death, Hospitalization, Other)
  Sender: FDA-Public Use
  Company Number: US-BRISTOL-MYERS SQUIBB COMPANY-BMS-2018-100353

PATIENT
  Age: 88 Year
  Sex: Male

DRUGS (1)
  1. NIVOLUMAB [Suspect]
     Active Substance: NIVOLUMAB
     Indication: MALIGNANT MELANOMA
     Dosage: 240 MG, Q2WK
     Route: 042
     Dates: start: 20171110, end: 20180914

REACTIONS (9)
  - Metastases to lung [Unknown]
  - Acute pulmonary oedema [Recovered/Resolved]
  - Cardiac failure congestive [Recovered/Resolved]
  - Adrenal insufficiency [Recovering/Resolving]
  - Acute respiratory failure [Fatal]
  - Acute respiratory distress syndrome [Recovered/Resolved]
  - Troponin increased [Not Recovered/Not Resolved]
  - Atrial fibrillation [Unknown]
  - Septic shock [Recovered/Resolved]

NARRATIVE: CASE EVENT DATE: 20181007
